FAERS Safety Report 4313353-X (Version None)
Quarter: 2004Q1

REPORT INFORMATION
  Report Type: 
  Country: None (occurrence: None)
  Receive Date: 20040304
  Receipt Date: 20040224
  Transmission Date: 20041129
  Serious: Yes (Hospitalization)
  Sender: FDA-Public Use
  Company Number: 2004008683

PATIENT
  Sex: 0

DRUGS (3)
  1. SORTIS (ATORVASTATIN) [Suspect]
     Indication: ILL-DEFINED DISORDER
     Dosage: 20 MG, ORAL
     Route: 048
  2. PLAVIX [Suspect]
     Indication: ILL-DEFINED DISORDER
     Dosage: 75 MG (DAILY,
  3. ACETYLSALICYLIC ACID SRT [Concomitant]

REACTIONS (4)
  - DRUG INTERACTION [None]
  - POST PROCEDURAL COMPLICATION [None]
  - STENT OCCLUSION [None]
  - THROMBOSIS [None]
